FAERS Safety Report 18361975 (Version 1)
Quarter: 2020Q4

REPORT INFORMATION
  Report Type: Other
  Country: DE (occurrence: DE)
  Receive Date: 20201008
  Receipt Date: 20201008
  Transmission Date: 20210114
  Serious: Yes (Other)
  Sender: FDA-Public Use
  Company Number: DE-COLLEGIUM PHARMACEUTICAL, INC.-2020CGM00264

PATIENT
  Age: 94 Year
  Sex: Female
  Weight: 50 kg

DRUGS (9)
  1. NUCYNTA ER [Suspect]
     Active Substance: TAPENTADOL HYDROCHLORIDE
     Indication: DECUBITUS ULCER
     Dosage: 50 MG, 1X/DAY
     Route: 048
     Dates: start: 20200828, end: 20200905
  2. HALOPERIDOL-RADIOPHARM [Suspect]
     Active Substance: HALOPERIDOL
     Indication: SUBSTANCE-INDUCED PSYCHOTIC DISORDER
     Dosage: UNK
     Route: 048
     Dates: start: 20200904, end: 20200905
  3. METOPROLOL SUCCINAT AL [Concomitant]
     Active Substance: METOPROLOL SUCCINATE
  4. ATORVASTATIN RATIOPHARM [Concomitant]
     Active Substance: ATORVASTATIN
  5. PROSTAVASIN [Suspect]
     Active Substance: ALPROSTADIL ALFADEX
     Indication: PRODUCT USED FOR UNKNOWN INDICATION
     Dosage: UNK
     Route: 065
     Dates: start: 20200710
  6. TORASEMID AL [Concomitant]
     Active Substance: TORSEMIDE
  7. ELIQUIS [Concomitant]
     Active Substance: APIXABAN
     Dosage: UNK
     Dates: start: 201908
  8. NUCYNTA ER [Suspect]
     Active Substance: TAPENTADOL HYDROCHLORIDE
     Indication: FRACTURE PAIN
  9. RAMIPRIL 1A PHARMA [Concomitant]
     Active Substance: RAMIPRIL
     Dosage: UNK
     Dates: start: 201909

REACTIONS (5)
  - Loss of personal independence in daily activities [Unknown]
  - Fall [Unknown]
  - Malaise [Recovering/Resolving]
  - Mobility decreased [Unknown]
  - Circulatory collapse [Unknown]

NARRATIVE: CASE EVENT DATE: 202009
